FAERS Safety Report 12386778 (Version 1)
Quarter: 2016Q2

REPORT INFORMATION
  Report Type: Spontaneous
  Country: US (occurrence: US)
  Receive Date: 20160519
  Receipt Date: 20160519
  Transmission Date: 20160815
  Serious: No
  Sender: FDA-Public Use
  Company Number: US-ACTELION-A-NJ2016-135759

PATIENT
  Age: 63 Year
  Sex: Female

DRUGS (4)
  1. UPTRAVI [Suspect]
     Active Substance: SELEXIPAG
     Indication: PULMONARY ARTERIAL HYPERTENSION
     Dosage: 600 MCG, BID
     Route: 048
     Dates: start: 20160407
  2. SILDENAFIL. [Concomitant]
     Active Substance: SILDENAFIL
  3. UPTRAVI [Suspect]
     Active Substance: SELEXIPAG
     Dosage: 200 MCG, BID
     Route: 048
     Dates: start: 20160407
  4. OXYGEN. [Concomitant]
     Active Substance: OXYGEN

REACTIONS (8)
  - Diarrhoea [Unknown]
  - Headache [Unknown]
  - Crying [Unknown]
  - Chest discomfort [Unknown]
  - Arthralgia [Unknown]
  - Pain in extremity [Unknown]
  - Feeling abnormal [Unknown]
  - Muscular weakness [Unknown]
